FAERS Safety Report 13253106 (Version 1)
Quarter: 2017Q1

REPORT INFORMATION
  Report Type: Spontaneous
  Country: CN (occurrence: CN)
  Receive Date: 20170220
  Receipt Date: 20170220
  Transmission Date: 20170428
  Serious: Yes (Hospitalization)
  Sender: FDA-Public Use
  Company Number: CN-ELI_LILLY_AND_COMPANY-CN201702006868

PATIENT
  Sex: Male
  Weight: 66.3 kg

DRUGS (4)
  1. HUMALOG MIX50/50 [Suspect]
     Active Substance: INSULIN LISPRO
     Indication: PRODUCT USED FOR UNKNOWN INDICATION
     Dosage: 23 U, TID
     Route: 058
     Dates: start: 20161020, end: 20161022
  2. HUMALOG [Suspect]
     Active Substance: INSULIN LISPRO
     Indication: PRODUCT USED FOR UNKNOWN INDICATION
     Dosage: 14 U, QD
     Route: 058
     Dates: start: 20161020, end: 20161025
  3. HUMALOG MIX50/50 [Suspect]
     Active Substance: INSULIN LISPRO
     Dosage: 16 U, EACH MORNING
     Route: 058
     Dates: start: 20161023
  4. HUMALOG MIX50/50 [Suspect]
     Active Substance: INSULIN LISPRO
     Dosage: 14 U, EACH EVENING
     Route: 058
     Dates: start: 20161023

REACTIONS (3)
  - Limb discomfort [Recovering/Resolving]
  - Dry mouth [Recovering/Resolving]
  - Pain in extremity [Recovering/Resolving]
